FAERS Safety Report 25705829 (Version 2)
Quarter: 2025Q4

REPORT INFORMATION
  Report Type: Spontaneous
  Country: US (occurrence: US)
  Receive Date: 20250820
  Receipt Date: 20251010
  Transmission Date: 20260118
  Serious: Yes (Hospitalization)
  Sender: CSL BEHRING
  Company Number: US-BEH-2025216175

PATIENT
  Sex: Female
  Weight: 93.424 kg

DRUGS (3)
  1. BERINERT [Suspect]
     Active Substance: HUMAN C1-ESTERASE INHIBITOR
     Indication: Hereditary angioedema
     Dosage: 2000 IU, AS NEEDED
     Route: 042
     Dates: start: 202507
  2. BERINERT [Suspect]
     Active Substance: HUMAN C1-ESTERASE INHIBITOR
     Indication: Hereditary angioedema
     Dosage: 2000 IU, AS NEEDED
     Route: 042
     Dates: start: 202507
  3. HEPARIN [Concomitant]
     Active Substance: HEPARIN SODIUM
     Dosage: L/F SYR (3ML/SYR)

REACTIONS (1)
  - Weight decreased [Unknown]
